FAERS Safety Report 17714206 (Version 2)
Quarter: 2020Q2

REPORT INFORMATION
  Report Type: Spontaneous
  Country: DE (occurrence: DE)
  Receive Date: 20200427
  Receipt Date: 20200610
  Transmission Date: 20200714
  Serious: Yes (Hospitalization)
  Sender: FDA-Public Use
  Company Number: DE-ROCHE-2588092

PATIENT
  Sex: Female

DRUGS (6)
  1. CALCILAC [CALCIUM CARBONATE;COLECALCIFEROL] [Concomitant]
  2. OMEPRAZOLE. [Concomitant]
     Active Substance: OMEPRAZOLE
  3. VIGANTOLETTEN [Concomitant]
     Active Substance: CHOLECALCIFEROL
     Dosage: 1000 IU/D
     Route: 065
  4. ROACTEMRA [Suspect]
     Active Substance: TOCILIZUMAB
     Indication: TEMPORAL ARTERITIS
     Route: 058
     Dates: start: 20200217, end: 20200330
  5. CANDESARTAN. [Concomitant]
     Active Substance: CANDESARTAN
  6. PREDNISOLONE. [Concomitant]
     Active Substance: PREDNISOLONE
     Dosage: 12 MG/D
     Route: 065

REACTIONS (7)
  - Nausea [Unknown]
  - Hepatic cyst [Unknown]
  - Vomiting [Unknown]
  - COVID-19 [Unknown]
  - Night sweats [Unknown]
  - Hepatitis [Recovered/Resolved with Sequelae]
  - Abdominal pain upper [Unknown]

NARRATIVE: CASE EVENT DATE: 20200331
